FAERS Safety Report 4594190-8 (Version None)
Quarter: 2005Q1

REPORT INFORMATION
  Report Type: 
  Country: None (occurrence: None)
  Receive Date: 20050301
  Receipt Date: 20050217
  Transmission Date: 20050727
  Serious: Yes (Other)
  Sender: FDA-Public Use
  Company Number: PHBS2005BR02426

PATIENT
  Age: 26 Year
  Sex: Male
  Weight: 76 kg

DRUGS (2)
  1. DECADRON [Concomitant]
     Indication: SWELLING
     Dosage: 1 DF, Q12H
     Dates: start: 20050215
  2. CATAFLAM [Suspect]
     Indication: INFLAMMATION
     Route: 048
     Dates: start: 20050215, end: 20050217

REACTIONS (4)
  - DRUG HYPERSENSITIVITY [None]
  - DYSPNOEA [None]
  - RESPIRATORY TRACT CONGESTION [None]
  - SWELLING FACE [None]
